FAERS Safety Report 9785360 (Version 1)
Quarter: 2013Q4

REPORT INFORMATION
  Report Type: Spontaneous
  Country: IT (occurrence: IT)
  Receive Date: 20131227
  Receipt Date: 20131227
  Transmission Date: 20140711
  Serious: Yes (Hospitalization)
  Sender: FDA-Public Use
  Company Number: IT-ASTRAZENECA-2013SE92782

PATIENT
  Age: 20795 Day
  Sex: Female

DRUGS (2)
  1. BUDESONIDE [Suspect]
     Indication: CROHN^S DISEASE
     Route: 048
     Dates: start: 20131020, end: 20131216
  2. PENTASA [Concomitant]
     Indication: CROHN^S DISEASE
     Dates: start: 20131020, end: 20131216

REACTIONS (2)
  - Rhabdomyolysis [Recovering/Resolving]
  - Hypokalaemia [Recovering/Resolving]
